FAERS Safety Report 10731853 (Version 1)
Quarter: 2015Q1

REPORT INFORMATION
  Report Type: Spontaneous
  Country: GR (occurrence: GR)
  Receive Date: 20150123
  Receipt Date: 20150123
  Transmission Date: 20150721
  Serious: Yes (Hospitalization, Other)
  Sender: FDA-Public Use
  Company Number: GR-009507513-1410GRC011771

PATIENT
  Age: 62 Year
  Sex: Female

DRUGS (5)
  1. EZETROL [Suspect]
     Active Substance: EZETIMIBE
     Indication: DYSLIPIDAEMIA
     Dosage: 1 DF, TIW
     Route: 048
     Dates: start: 2009
  2. ATORVASTATIN [Concomitant]
     Active Substance: ATORVASTATIN
     Dosage: UNK
  3. ZYLAPOUR [Concomitant]
     Dosage: UNK UNK, TIW (3 TIMES A WEEK)
  4. OMEGA-3 ACIDS [Concomitant]
     Active Substance: OMEGA-3 FATTY ACIDS
     Dosage: UNK
  5. EZETROL [Suspect]
     Active Substance: EZETIMIBE
     Dosage: 1 DF, TIW
     Route: 048

REACTIONS (3)
  - Joint arthroplasty [Unknown]
  - Inflammation [Unknown]
  - Underdose [Unknown]

NARRATIVE: CASE EVENT DATE: 20141022
